FAERS Safety Report 13188758 (Version 1)
Quarter: 2017Q1

REPORT INFORMATION
  Report Type: Report from Study
  Country: US (occurrence: US)
  Receive Date: 20170206
  Receipt Date: 20170206
  Transmission Date: 20170428
  Serious: Yes (Other)
  Sender: FDA-Public Use
  Company Number: US-PFIZER INC-2017041227

PATIENT
  Age: 54 Year
  Sex: Female

DRUGS (1)
  1. IBRANCE [Suspect]
     Active Substance: PALBOCICLIB
     Indication: BREAST CANCER
     Dosage: 75 MG, CYCLIC [DAILY FOR DAY1-DAY21 ALLOWED]
     Route: 048
     Dates: start: 20160606

REACTIONS (3)
  - Bone marrow failure [Unknown]
  - Drug dose omission [Unknown]
  - Fatigue [Unknown]
